FAERS Safety Report 10580932 (Version 1)
Quarter: 2014Q4

REPORT INFORMATION
  Report Type: Spontaneous
  Country: GB (occurrence: None)
  Receive Date: 20141110
  Receipt Date: 20141110
  Transmission Date: 20150529
  Serious: Yes (Life-Threatening, Hospitalization, Other)
  Sender: FDA-Public Use
  Company Number: GB-H14001-14-01446

PATIENT
  Age: 68 Year
  Sex: Female

DRUGS (13)
  1. CO-AMOXICLAV [Suspect]
     Active Substance: AMOXICILLIN\CLAVULANIC ACID
     Indication: PYREXIA
  2. CIPROFLOXACIN. [Suspect]
     Active Substance: CIPROFLOXACIN
     Indication: PYREXIA
     Route: 048
     Dates: start: 20140929, end: 20141004
  3. MACROGOL [Concomitant]
     Active Substance: POLYETHYLENE GLYCOLS
  4. DALTEPARIN [Concomitant]
     Active Substance: DALTEPARIN
  5. HYDROCORTISONE. [Concomitant]
     Active Substance: HYDROCORTISONE
  6. HEPARIN [Concomitant]
     Active Substance: HEPARIN SODIUM
  7. CODEINE [Concomitant]
     Active Substance: CODEINE
  8. DOCETAXEL. [Concomitant]
     Active Substance: DOCETAXEL
  9. DOMEPERIDONE [Concomitant]
  10. TAZOCIN(PI/TAZO)(PIPERACILLIN SODIUM, TAXOBACTAM SODIUM) [Concomitant]
  11. DEXAMETHASONE. [Concomitant]
     Active Substance: DEXAMETHASONE
  12. GRANISETRON [Concomitant]
     Active Substance: GRANISETRON
  13. PEGFILGRASTIM [Concomitant]
     Active Substance: PEGFILGRASTIM

REACTIONS (4)
  - Diarrhoea [None]
  - Vomiting [None]
  - Acute kidney injury [None]
  - Nausea [None]

NARRATIVE: CASE EVENT DATE: 201409
